FAERS Safety Report 10196710 (Version 3)
Quarter: 2014Q2

REPORT INFORMATION
  Report Type: Spontaneous
  Country: JP (occurrence: JP)
  Receive Date: 20140527
  Receipt Date: 20140605
  Transmission Date: 20141212
  Serious: Yes (Other)
  Sender: FDA-Public Use
  Company Number: JP-PFIZER INC-2014144895

PATIENT
  Age: 73 Year
  Sex: Male

DRUGS (1)
  1. AMLODIPINE BESILATE [Suspect]
     Dosage: UNK
     Route: 048
     Dates: start: 201301, end: 201303

REACTIONS (1)
  - Agranulocytosis [Unknown]
